FAERS Safety Report 5327246-2 (Version None)
Quarter: 2007Q2

REPORT INFORMATION
  Report Type: 
  Country: None (occurrence: None)
  Receive Date: 20070517
  Receipt Date: 20070514
  Transmission Date: 20071010
  Serious: Yes (Hospitalization)
  Sender: FDA-Public Use
  Company Number: DE-AVENTIS-200711287DE

PATIENT
  Age: 43 Year
  Sex: Female
  Weight: 79 kg

DRUGS (7)
  1. ARAVA [Suspect]
     Indication: SYSTEMIC LUPUS ERYTHEMATOSUS
     Route: 048
     Dates: start: 20060801, end: 20060901
  2. ARAVA [Suspect]
     Indication: RHEUMATOID ARTHRITIS
     Route: 048
     Dates: start: 20060801, end: 20060901
  3. PREDNISOLONE [Concomitant]
     Indication: SYSTEMIC LUPUS ERYTHEMATOSUS
     Route: 048
     Dates: start: 20050701
  4. PREDNISOLONE [Concomitant]
     Indication: RHEUMATOID ARTHRITIS
     Route: 048
     Dates: start: 20050701
  5. CALCIUM WITH VITAMIN D             /01233101/ [Concomitant]
     Indication: PROPHYLAXIS
     Dosage: DOSE: UNKNOWN
     Route: 048
     Dates: start: 20050801
  6. PANTOZOL                           /01263202/ [Concomitant]
     Indication: PROPHYLAXIS
     Route: 048
     Dates: start: 20050801
  7. COTRIM DS [Concomitant]
     Indication: PROPHYLAXIS
     Dosage: DOSE: NOT REPORTED
     Route: 048
     Dates: start: 20061001

REACTIONS (8)
  - ALOPECIA [None]
  - HEPATOTOXICITY [None]
  - LEUKOPENIA [None]
  - PANCYTOPENIA [None]
  - RASH ERYTHEMATOUS [None]
  - SKIN TOXICITY [None]
  - THROMBOCYTOPENIA [None]
  - TRANSAMINASES INCREASED [None]
